FAERS Safety Report 4536690-2 (Version None)
Quarter: 2004Q4

REPORT INFORMATION
  Report Type: 
  Country: None (occurrence: None)
  Receive Date: 20041220
  Receipt Date: 20041206
  Transmission Date: 20050328
  Serious: Yes (Other)
  Sender: FDA-Public Use
  Company Number: 2004111466

PATIENT
  Age: 23 Year
  Sex: Female
  Weight: 130 kg

DRUGS (1)
  1. DEPO-PROVERA [Suspect]
     Indication: CONTRACEPTION
     Dosage: 150 MG (150 MG, 1ST INJECTION, EVERY 10-13 WEEKS), INTRAMUSCULAR
     Route: 030
     Dates: start: 20040626, end: 20040626

REACTIONS (3)
  - ABDOMINAL DISTENSION [None]
  - AMENORRHOEA [None]
  - ROAD TRAFFIC ACCIDENT [None]
